FAERS Safety Report 9992855 (Version 1)
Quarter: 2014Q1

REPORT INFORMATION
  Report Type: Report from Study
  Country: US (occurrence: US)
  Receive Date: 20140310
  Receipt Date: 20140310
  Transmission Date: 20141002
  Serious: No
  Sender: FDA-Public Use
  Company Number: US-ABBVIE-13P-163-1142509-00

PATIENT
  Age: 39 Year
  Sex: 0

DRUGS (5)
  1. LUPRON DEPOT [Suspect]
     Indication: ENDOMETRIOSIS
     Dates: start: 20130829
  2. OXYCODONE [Concomitant]
     Indication: PRODUCT USED FOR UNKNOWN INDICATION
     Dosage: EVERY 6 HOURS AS NEEDED
  3. PREMPRO [Concomitant]
     Indication: PRODUCT USED FOR UNKNOWN INDICATION
     Dosage: .625/5 MG
  4. LASIX [Concomitant]
     Indication: OEDEMA
  5. IBUPROFEN [Concomitant]
     Indication: PAIN

REACTIONS (6)
  - Memory impairment [Not Recovered/Not Resolved]
  - Oedema [Recovering/Resolving]
  - Oedema peripheral [Recovering/Resolving]
  - Suprapubic pain [Recovered/Resolved]
  - Drug ineffective [Not Recovered/Not Resolved]
  - Medication error [Unknown]
